FAERS Safety Report 11353306 (Version 1)
Quarter: 2015Q3

REPORT INFORMATION
  Report Type: Spontaneous
  Country: US (occurrence: US)
  Receive Date: 20150807
  Receipt Date: 20150807
  Transmission Date: 20151125
  Serious: Yes (Other)
  Sender: FDA-Public Use
  Company Number: US-ASTRAZENECA-2008BM01485

PATIENT
  Age: 71 Year
  Sex: Male

DRUGS (12)
  1. GLYBURIDE. [Concomitant]
     Active Substance: GLYBURIDE
     Indication: DIABETES MELLITUS
     Route: 048
     Dates: start: 1993, end: 20080123
  2. MACRODANTIN [Concomitant]
     Active Substance: NITROFURANTOIN
     Indication: URINARY TRACT INFECTION
     Dosage: UNK
     Dates: start: 200801
  3. ZYVOX [Concomitant]
     Active Substance: LINEZOLID
     Indication: GENITOURINARY TRACT INFECTION
     Dosage: UNK
     Dates: end: 2008
  4. BYETTA [Suspect]
     Active Substance: EXENATIDE
     Indication: TYPE 2 DIABETES MELLITUS
     Route: 058
     Dates: start: 20080110
  5. BYETTA [Suspect]
     Active Substance: EXENATIDE
     Indication: TYPE 2 DIABETES MELLITUS
     Route: 058
  6. BYETTA [Suspect]
     Active Substance: EXENATIDE
     Indication: TYPE 2 DIABETES MELLITUS
     Route: 065
  7. LISINOPRIL. [Concomitant]
     Active Substance: LISINOPRIL
     Indication: BLOOD PRESSURE ABNORMAL
     Dosage: UNK
  8. GLYBURIDE. [Concomitant]
     Active Substance: GLYBURIDE
     Indication: DIABETES MELLITUS
     Dates: start: 2008, end: 2008
  9. LEVAQUIN [Concomitant]
     Active Substance: LEVOFLOXACIN
     Indication: URINE ABNORMALITY
     Dosage: UNK
     Dates: start: 20080115
  10. BYETTA [Suspect]
     Active Substance: EXENATIDE
     Indication: TYPE 2 DIABETES MELLITUS
     Route: 065
  11. GLYBURIDE. [Concomitant]
     Active Substance: GLYBURIDE
     Indication: DIABETES MELLITUS
     Dates: start: 2008
  12. GLYBURIDE. [Concomitant]
     Active Substance: GLYBURIDE
     Indication: DIABETES MELLITUS

REACTIONS (11)
  - Inappropriate schedule of drug administration [Unknown]
  - Prostate cancer [Not Recovered/Not Resolved]
  - Blood glucose increased [Recovered/Resolved]
  - Drug dose omission [Unknown]
  - Irritability [Recovered/Resolved]
  - Urinary tract infection [Not Recovered/Not Resolved]
  - Urine abnormality [Unknown]
  - Back pain [Recovering/Resolving]
  - Vomiting [Recovered/Resolved]
  - Blood glucose decreased [Not Recovered/Not Resolved]
  - Glycosylated haemoglobin increased [Recovering/Resolving]

NARRATIVE: CASE EVENT DATE: 200801
